FAERS Safety Report 7134095-1 (Version None)
Quarter: 2010Q4

REPORT INFORMATION
  Report Type: 
  Country: None (occurrence: None)
  Receive Date: 20101203
  Receipt Date: 20101124
  Transmission Date: 20110411
  Serious: Yes (Life-Threatening, Hospitalization)
  Sender: FDA-Public Use
  Company Number: CA-JNJFOC-20101006319

PATIENT
  Sex: Female

DRUGS (7)
  1. REMICADE [Suspect]
     Indication: CROHN'S DISEASE
     Route: 042
  2. REMICADE [Suspect]
     Route: 042
  3. REMICADE [Suspect]
     Route: 042
  4. AVELOX [Interacting]
     Indication: CYSTITIS
  5. AMOXICILLIN [Suspect]
     Indication: CYSTITIS
  6. CODEINE [Suspect]
     Indication: PRODUCT USED FOR UNKNOWN INDICATION
  7. MACROBID [Suspect]
     Indication: CROHN'S DISEASE

REACTIONS (12)
  - ABDOMINAL DISCOMFORT [None]
  - ABDOMINAL DISTENSION [None]
  - ANAPHYLACTIC SHOCK [None]
  - BLADDER OPERATION [None]
  - CROHN'S DISEASE [None]
  - CYSTITIS [None]
  - DEHYDRATION [None]
  - DIZZINESS [None]
  - DRUG HYPERSENSITIVITY [None]
  - DRUG INTERACTION [None]
  - HYPOTENSION [None]
  - INCISION SITE ABSCESS [None]
